FAERS Safety Report 8726232 (Version 3)
Quarter: 2012Q4

REPORT INFORMATION
  Report Type: Spontaneous
  Country: US (occurrence: None)
  Receive Date: 20120730
  Receipt Date: 20120921
  Transmission Date: 20130627
  Serious: Yes (Death, Hospitalization)
  Sender: FDA-Public Use
  Company Number: 2012SGN00313

PATIENT
  Age: 57 Year
  Sex: Male

DRUGS (1)
  1. ADCETRIS [Suspect]
     Indication: ANAPLASTIC LARGE CELL LYMPHOMA T- AND NULL-CELL TYPES RECURRENT
     Dosage: 1.8 MG/KG, Q21D, INTRAVENOUS
     Route: 042
     Dates: start: 20120706, end: 20120706

REACTIONS (17)
  - Septic shock [None]
  - Febrile neutropenia [None]
  - Acute hepatic failure [None]
  - Renal failure acute [None]
  - Disseminated intravascular coagulation [None]
  - Metabolic encephalopathy [None]
  - Hyperhidrosis [None]
  - Decreased appetite [None]
  - Diarrhoea [None]
  - Refusal of treatment by patient [None]
  - Blepharospasm [None]
  - Liver injury [None]
  - Respiratory distress [None]
  - Non-Hodgkin^s lymphoma [None]
  - Decreased appetite [None]
  - Diarrhoea haemorrhagic [None]
  - Mental status changes [None]
